FAERS Safety Report 13524217 (Version 1)
Quarter: 2017Q2

REPORT INFORMATION
  Report Type: Spontaneous
  Country: GB (occurrence: GB)
  Receive Date: 20170508
  Receipt Date: 20170508
  Transmission Date: 20170830
  Serious: Yes (Other)
  Sender: FDA-Public Use
  Company Number: GB-MYLANLABS-2017M1027727

PATIENT

DRUGS (15)
  1. PREDNISOLONE. [Concomitant]
     Active Substance: PREDNISOLONE
     Dates: start: 20170306, end: 20170311
  2. AMOXICILLIN. [Concomitant]
     Active Substance: AMOXICILLIN
     Dates: start: 20170418
  3. CARBOCISTEINE [Concomitant]
     Active Substance: CARBOCYSTEINE
     Dates: start: 20170306, end: 20170326
  4. SENNA [Concomitant]
     Active Substance: SENNA LEAF\SENNOSIDES\SENNOSIDES A AND B
     Dosage: TAKE 1 OR 2 AT NIGHT
     Dates: start: 20130207
  5. LACTULOSE. [Concomitant]
     Active Substance: LACTULOSE
     Dosage: AS DIRECTED  5-15 ML UP TO TWICE A DAY
     Dates: start: 20170117
  6. SALBUTAMOL [Concomitant]
     Active Substance: ALBUTEROL
     Dosage: FOUR TIMES A DAY
     Route: 055
     Dates: start: 20081126
  7. LEVOTHYROXINE. [Concomitant]
     Active Substance: LEVOTHYROXINE
     Dosage: MORNING
     Dates: start: 20160617
  8. COD LIVER OIL [Concomitant]
     Active Substance: COD LIVER OIL
     Dates: start: 20130927
  9. DOXYCYCLINE. [Suspect]
     Active Substance: DOXYCYCLINE
     Dates: start: 20170420
  10. TRAMADOL. [Concomitant]
     Active Substance: TRAMADOL
     Indication: PAIN
     Dosage: UP TO FOUR TIMES DAILY
     Dates: start: 20161107
  11. CALCEOS [Concomitant]
     Active Substance: CALCIUM CARBONATE\CHOLECALCIFEROL
     Dates: start: 20170112
  12. CETIRIZINE [Concomitant]
     Active Substance: CETIRIZINE HYDROCHLORIDE
     Dates: start: 20170420
  13. CO-AMOXICLAV [Concomitant]
     Active Substance: AMOXICILLIN\CLAVULANIC ACID
     Dates: start: 20170213, end: 20170220
  14. FOSTAIR [Concomitant]
     Active Substance: BECLOMETHASONE\FORMOTEROL
     Indication: ASTHMA
     Route: 055
     Dates: start: 20161213
  15. FYBOGEL [Concomitant]
     Active Substance: PLANTAGO OVATA SEED
     Indication: FAECES HARD
     Dosage: 1-2 DAILY
     Dates: start: 20130819

REACTIONS (1)
  - Petechiae [Recovering/Resolving]

NARRATIVE: CASE EVENT DATE: 20170420
